FAERS Safety Report 9060765 (Version 2)
Quarter: 2013Q1

REPORT INFORMATION
  Report Type: Spontaneous
  Country: US (occurrence: US)
  Receive Date: 20130204
  Receipt Date: 20130329
  Transmission Date: 20140127
  Serious: No
  Sender: FDA-Public Use
  Company Number: US-009507513-1302USA000896

PATIENT
  Sex: Male
  Weight: 72.56 kg

DRUGS (7)
  1. ZEGERID OTC CAPSULES [Suspect]
     Indication: DYSPEPSIA
     Dosage: 20 MG, QD
     Route: 048
     Dates: end: 201301
  2. ZEGERID OTC CAPSULES [Suspect]
     Indication: MEDICAL OBSERVATION
  3. ASPIRIN [Concomitant]
     Indication: CARDIAC DISORDER
     Dosage: UNK, UNKNOWN
  4. VESICARE [Concomitant]
     Indication: MICTURITION DISORDER
     Dosage: UNK, UNKNOWN
  5. PREVACID [Concomitant]
     Indication: DYSPEPSIA
     Dosage: UNK, UNKNOWN
  6. LYRICA [Concomitant]
     Indication: PAIN IN EXTREMITY
     Dosage: UNK, UNKNOWN
  7. GLIPIZIDE [Concomitant]
     Indication: TYPE 2 DIABETES MELLITUS
     Dosage: UNK, BID

REACTIONS (1)
  - Condition aggravated [Recovered/Resolved]
